FAERS Safety Report 9089520 (Version 1)
Quarter: 2013Q1

REPORT INFORMATION
  Report Type: Spontaneous
  Country: JP (occurrence: JP)
  Receive Date: 20130201
  Receipt Date: 20130201
  Transmission Date: 20140127
  Serious: Yes (Other)
  Sender: FDA-Public Use
  Company Number: JP-UCBSA-077238

PATIENT
  Age: 11 Year
  Sex: Male

DRUGS (6)
  1. E KEPPRA [Suspect]
     Indication: EPILEPSY
     Route: 048
     Dates: start: 20110329, end: 20120124
  2. E KEPPRA [Suspect]
     Indication: EPILEPSY
     Dosage: VIA TUBE
     Route: 048
     Dates: start: 20101228, end: 20110328
  3. EXCEGRAN [Concomitant]
     Indication: EPILEPSY
     Dosage: DAILY DOSE: 280MG
     Route: 048
  4. PHENOBAL [Concomitant]
     Indication: EPILEPSY
     Dosage: DAILY DOSE: 100MG
     Route: 048
  5. RIVOTRIL [Concomitant]
     Indication: EPILEPSY
     Dosage: DAILY DOSE: 3MG
     Route: 048
  6. TERNELIN [Concomitant]
     Indication: HYPERTONIA
     Dosage: DAILY DOSE: 5MG
     Route: 048

REACTIONS (1)
  - Apnoea [Recovered/Resolved]
